FAERS Safety Report 4525751-X (Version None)
Quarter: 2004Q4

REPORT INFORMATION
  Report Type: 
  Country: None (occurrence: None)
  Receive Date: 20041116
  Receipt Date: 20040723
  Transmission Date: 20050328
  Serious: Yes (Other)
  Sender: FDA-Public Use
  Company Number: S04-USA-03705-01

PATIENT
  Age: 65 Year
  Sex: Female

DRUGS (6)
  1. NAMENDA [Suspect]
     Dosage: 15 MG QD PO
     Route: 048
  2. NAMENDA [Suspect]
     Dosage: 5 MG QD PO
     Route: 048
  3. NAMENDA [Suspect]
     Dosage: 10 MG QD PO
     Route: 048
  4. NAMENDA [Suspect]
     Dosage: 5 MG BID PO
     Route: 048
  5. ZOLOFT [Concomitant]
  6. CHOLINESTERASE INHIBITORS [Concomitant]

REACTIONS (1)
  - CONVULSION [None]
